FAERS Safety Report 10216489 (Version 1)
Quarter: 2014Q2

REPORT INFORMATION
  Report Type: Spontaneous
  Country: US (occurrence: US)
  Receive Date: 20140604
  Receipt Date: 20140604
  Transmission Date: 20141212
  Serious: No
  Sender: FDA-Public Use
  Company Number: US-PFIZER INC-2014150150

PATIENT
  Sex: Female

DRUGS (4)
  1. EFFEXOR XR [Suspect]
     Dosage: 75 MG, ONCE A DAY (FOR 3-4 WEEKS)
     Dates: start: 2012, end: 2012
  2. EFFEXOR XR [Suspect]
     Dosage: 37.5 MG, ONCE A DAY (FOR FOUR DAYS)
     Dates: start: 2012, end: 2012
  3. EFFEXOR XR [Suspect]
     Dosage: 75 MG, ONCE A DAY (FOR 4-5-6 WEEKS)
     Dates: start: 2012, end: 2012
  4. EFFEXOR XR [Suspect]
     Dosage: 37.5 MG, 1X/DAY (FOR TWO DAYS)
     Dates: start: 2012

REACTIONS (2)
  - Paraesthesia [Unknown]
  - Head discomfort [Unknown]
